FAERS Safety Report 8070354-6 (Version None)
Quarter: 2012Q1

REPORT INFORMATION
  Report Type: 
  Country: None (occurrence: None)
  Receive Date: 20120125
  Receipt Date: 20120118
  Transmission Date: 20120608
  Serious: Yes (Other)
  Sender: FDA-Public Use
  Company Number: CA-ROCHE-1031880

PATIENT
  Sex: Male
  Weight: 80.812 kg

DRUGS (5)
  1. VITAMIN D [Concomitant]
  2. MABTHERA [Suspect]
     Indication: CHRONIC LYMPHOCYTIC LEUKAEMIA
     Route: 042
     Dates: start: 20111102
  3. MULTI-VITAMIN [Concomitant]
  4. CALCIUM [Concomitant]
  5. FISH OIL [Concomitant]

REACTIONS (2)
  - DEHYDRATION [None]
  - BACK PAIN [None]
